FAERS Safety Report 7201769-3 (Version None)
Quarter: 2010Q4

REPORT INFORMATION
  Report Type: 
  Country: None (occurrence: None)
  Receive Date: 20101215
  Receipt Date: 20101207
  Transmission Date: 20110411
  Serious: Yes (Other)
  Sender: FDA-Public Use
  Company Number: 017699

PATIENT
  Sex: Female
  Weight: 60 kg

DRUGS (8)
  1. KEPPRA [Suspect]
     Indication: ENCEPHALITIS
     Dosage: (20 ML BID, PEG ADMINISTRATION)
     Dates: start: 20100101
  2. VIMPAT [Suspect]
     Indication: ENCEPHALITIS
     Dosage: (10 ML BID, PEG ADMINISTRATION)
     Dates: start: 20100401
  3. BELOC ZOK [Concomitant]
  4. TOREM /01036501/ [Concomitant]
  5. NEXIUM [Concomitant]
  6. SPIRONOLACTONE [Concomitant]
  7. EUNERPAN [Concomitant]
  8. RIVOTRIL [Concomitant]

REACTIONS (6)
  - AGGRESSION [None]
  - DIET REFUSAL [None]
  - EYE PAIN [None]
  - NASAL DISCOMFORT [None]
  - RESTLESSNESS [None]
  - SOMNOLENCE [None]
